FAERS Safety Report 7775239-8 (Version None)
Quarter: 2011Q3

REPORT INFORMATION
  Report Type: 
  Country: None (occurrence: None)
  Receive Date: 20110923
  Receipt Date: 20110915
  Transmission Date: 20111222
  Serious: Yes (Hospitalization, Disabling, Other)
  Sender: FDA-Public Use
  Company Number: US-MERCK-1008USA04013

PATIENT
  Age: 46 Year
  Sex: Female
  Weight: 64 kg

DRUGS (7)
  1. FOSAMAX [Suspect]
     Indication: OSTEOPENIA
     Route: 048
     Dates: start: 20050714, end: 20100101
  2. FOSAMAX [Suspect]
     Indication: OSTEOPOROSIS
     Route: 048
     Dates: start: 20050714, end: 20100101
  3. TRAZODONE HYDROCHLORIDE [Concomitant]
     Indication: DEPRESSION
     Route: 065
     Dates: start: 20010101
  4. VITAMINS (UNSPECIFIED) [Concomitant]
     Route: 065
     Dates: start: 20031201
  5. PREMARIN [Concomitant]
     Indication: HORMONE THERAPY
     Route: 065
     Dates: start: 20000101
  6. FOSAMAX [Suspect]
     Indication: OSTEOPOROSIS
     Route: 048
     Dates: end: 20100713
  7. CYANOCOBALAMIN [Concomitant]
     Route: 065
     Dates: start: 20030101, end: 20090101

REACTIONS (74)
  - CERVICAL SPINAL STENOSIS [None]
  - TEMPERATURE INTOLERANCE [None]
  - TEMPOROMANDIBULAR JOINT SYNDROME [None]
  - NERVOUSNESS [None]
  - INTERVERTEBRAL DISC DEGENERATION [None]
  - BACK DISORDER [None]
  - CARDIAC FAILURE CONGESTIVE [None]
  - BURSITIS [None]
  - HYPOAESTHESIA [None]
  - BLOOD GLUCOSE DECREASED [None]
  - FUNGAL SKIN INFECTION [None]
  - NOCTURIA [None]
  - POST LUMBAR PUNCTURE SYNDROME [None]
  - INSOMNIA [None]
  - ANAEMIA [None]
  - ABDOMINAL PAIN [None]
  - IMPAIRED HEALING [None]
  - TINNITUS [None]
  - NECK PAIN [None]
  - MELANOCYTIC NAEVUS [None]
  - EAR DISORDER [None]
  - CONSTIPATION [None]
  - BLOOD ALKALINE PHOSPHATASE INCREASED [None]
  - OSTEOARTHRITIS [None]
  - BACK PAIN [None]
  - PAIN IN EXTREMITY [None]
  - SCOTOMA [None]
  - RHINITIS ALLERGIC [None]
  - RASH GENERALISED [None]
  - POLYDIPSIA [None]
  - OEDEMA PERIPHERAL [None]
  - NEUROPATHY PERIPHERAL [None]
  - LEUKOPENIA [None]
  - DRY MOUTH [None]
  - ACROCHORDON [None]
  - HYPOGLYCAEMIA [None]
  - SINUSITIS [None]
  - MUSCULAR WEAKNESS [None]
  - SKIN PAPILLOMA [None]
  - PRESBYACUSIS [None]
  - INTERVERTEBRAL DISC PROTRUSION [None]
  - DERMATITIS [None]
  - FALL [None]
  - HEARING IMPAIRED [None]
  - EAR PAIN [None]
  - ABDOMINAL DISCOMFORT [None]
  - DECREASED APPETITE [None]
  - ANXIETY [None]
  - ANXIETY DISORDER [None]
  - NAUSEA [None]
  - PHARYNGITIS [None]
  - RESPIRATORY TRACT INFECTION [None]
  - DEPRESSION [None]
  - CHEST PAIN [None]
  - BRONCHITIS [None]
  - EYE DISORDER [None]
  - ERYTHEMA [None]
  - PAIN [None]
  - ALANINE AMINOTRANSFERASE INCREASED [None]
  - RENAL CYST [None]
  - RASH [None]
  - POOR PERIPHERAL CIRCULATION [None]
  - DYSPEPSIA [None]
  - COUGH [None]
  - FEMUR FRACTURE [None]
  - ACUTE SINUSITIS [None]
  - ARTHRALGIA [None]
  - CARPAL TUNNEL SYNDROME [None]
  - OEDEMA [None]
  - TOOTH DISORDER [None]
  - MONONEURITIS [None]
  - DYSPLASTIC NAEVUS [None]
  - CUBITAL TUNNEL SYNDROME [None]
  - ASPARTATE AMINOTRANSFERASE INCREASED [None]
